FAERS Safety Report 14755791 (Version 6)
Quarter: 2019Q3

REPORT INFORMATION
  Report Type: Spontaneous
  Country: US (occurrence: US)
  Receive Date: 20180413
  Receipt Date: 20190716
  Transmission Date: 20191004
  Serious: Yes (Death)
  Sender: FDA-Public Use
  Company Number: US-PFIZER INC-2016454405

PATIENT
  Age: 57 Year
  Sex: Male
  Weight: 90 kg

DRUGS (13)
  1. CLONAZEPAM. [Concomitant]
     Active Substance: CLONAZEPAM
     Dosage: 1 MG, 1X/DAY (QHS)
     Route: 048
  2. REMERON [Concomitant]
     Active Substance: MIRTAZAPINE
     Dosage: 15 MG, 1X/DAY (QHS)
     Route: 048
  3. DEXTROAMPHETAMINE. [Concomitant]
     Active Substance: DEXTROAMPHETAMINE
     Dosage: 10 MG, DAILY
     Route: 048
  4. ACYCLOVIR. [Concomitant]
     Active Substance: ACYCLOVIR
     Dosage: 400 MG, 2X/DAY
     Route: 048
  5. RAPAMUNE [Suspect]
     Active Substance: SIROLIMUS
     Dosage: 2.5 MG, UNK
     Route: 048
  6. RAPAMUNE [Suspect]
     Active Substance: SIROLIMUS
     Dosage: 2 MG, DAILY
     Route: 048
  7. RAPAMUNE [Suspect]
     Active Substance: SIROLIMUS
     Dosage: 0.5 MG, DAILY
     Route: 048
  8. RAPAMUNE [Suspect]
     Active Substance: SIROLIMUS
     Indication: LIVER TRANSPLANT
     Dosage: 1 MG, DAILY
     Route: 048
  9. RAPAMUNE [Suspect]
     Active Substance: SIROLIMUS
     Dosage: 1 MG, DAILY
     Route: 048
  10. RAPAMUNE [Suspect]
     Active Substance: SIROLIMUS
     Dosage: UNK, (EVERY TWO DAYS, USE AN EXTRA 1 MG)
     Route: 048
  11. ATORVASTATIN [Concomitant]
     Active Substance: ATORVASTATIN
     Dosage: 20 MG, DAILY
     Route: 048
  12. RAMIPRIL. [Concomitant]
     Active Substance: RAMIPRIL
     Dosage: 10 MG, DAILY
     Route: 048
  13. LORTAB [Concomitant]
     Active Substance: ACETAMINOPHEN\HYDROCODONE BITARTRATE
     Indication: PAIN
     Dosage: 1 DF, AS NEEDED (TID) [HYDROCODONE: 10]/[ACETAMINOPHEN: 325]

REACTIONS (7)
  - Product use in unapproved indication [Unknown]
  - Death [Fatal]
  - Wrong technique in product usage process [Unknown]
  - Product use issue [Unknown]
  - Intentional product misuse [Unknown]
  - Weight decreased [Unknown]
  - Drug level decreased [Not Recovered/Not Resolved]

NARRATIVE: CASE EVENT DATE: 20181215
